FAERS Safety Report 7935999-X (Version None)
Quarter: 2011Q4

REPORT INFORMATION
  Report Type: 
  Country: None (occurrence: None)
  Receive Date: 20111123
  Receipt Date: 20111117
  Transmission Date: 20120403
  Serious: Yes (Death)
  Sender: FDA-Public Use
  Company Number: US-BAYER-200944055NA

PATIENT
  Age: 85 Year
  Sex: Female

DRUGS (4)
  1. NEXAVAR [Suspect]
     Indication: HEPATIC NEOPLASM MALIGNANT
     Route: 048
     Dates: start: 20091202, end: 20091217
  2. NEXAVAR [Suspect]
     Dosage: 400 MG, BID
     Route: 048
     Dates: start: 20100101
  3. NEXAVAR [Suspect]
     Dosage: 200 MG, QD
     Route: 048
  4. NEXAVAR [Suspect]
     Dosage: 400 MG AM AND 200 MG PM - AS USED DOSE: 400-200 MG
     Route: 048
     Dates: start: 20091218, end: 20100101

REACTIONS (5)
  - RASH [None]
  - SENSITIVITY OF TEETH [None]
  - DEATH [None]
  - DYSPEPSIA [None]
  - ORAL PAIN [None]
